FAERS Safety Report 16903066 (Version 1)
Quarter: 2019Q4

REPORT INFORMATION
  Report Type: Spontaneous
  Country: US (occurrence: US)
  Receive Date: 20191010
  Receipt Date: 20191010
  Transmission Date: 20200122
  Serious: Yes (Other)
  Sender: FDA-Public Use
  Company Number: US-NOVOPROD-689136

PATIENT
  Sex: Female

DRUGS (4)
  1. TRESIBA [Suspect]
     Active Substance: INSULIN DEGLUDEC
     Indication: TYPE 2 DIABETES MELLITUS
     Dosage: 50 IU, QD (IN MORNING)
     Route: 058
     Dates: start: 201801
  2. NOVOLOG [Suspect]
     Active Substance: INSULIN ASPART
     Indication: TYPE 2 DIABETES MELLITUS
     Dosage: UNK
     Route: 058
     Dates: start: 201907
  3. NOVOLOG [Suspect]
     Active Substance: INSULIN ASPART
     Indication: DIABETIC AMYOTROPHY
  4. TRESIBA [Suspect]
     Active Substance: INSULIN DEGLUDEC
     Indication: DIABETIC AMYOTROPHY
     Dosage: DOSE INCREASED
     Route: 058

REACTIONS (4)
  - Hyperglycaemia [Recovered/Resolved]
  - Blood glucose decreased [Recovered/Resolved]
  - Skin cancer [Unknown]
  - Product communication issue [Unknown]

NARRATIVE: CASE EVENT DATE: 2019
